FAERS Safety Report 5133903-3 (Version None)
Quarter: 2006Q4

REPORT INFORMATION
  Report Type: 
  Country: None (occurrence: None)
  Receive Date: 20061018
  Receipt Date: 20061009
  Transmission Date: 20070319
  Serious: No
  Sender: FDA-Public Use
  Company Number: 230983

PATIENT
  Age: 83 Year
  Sex: Female
  Weight: 55.8 kg

DRUGS (4)
  1. AVASTIN [Suspect]
     Indication: LUNG NEOPLASM MALIGNANT
     Dosage: 10 MG/KG, Q3W, INTRAVENOUS
     Route: 042
     Dates: start: 20060328
  2. ZOMETA [Concomitant]
  3. SYNTHROID [Concomitant]
  4. CYMBALTA [Concomitant]

REACTIONS (3)
  - FALL [None]
  - METASTASES TO CENTRAL NERVOUS SYSTEM [None]
  - REVERSIBLE POSTERIOR LEUKOENCEPHALOPATHY SYNDROME [None]
